FAERS Safety Report 8204558-6 (Version None)
Quarter: 2012Q1

REPORT INFORMATION
  Report Type: 
  Country: None (occurrence: None)
  Receive Date: 20120313
  Receipt Date: 20120307
  Transmission Date: 20120608
  Serious: Yes (Other)
  Sender: FDA-Public Use
  Company Number: US-PFIZER INC-2012045701

PATIENT
  Sex: Female
  Weight: 68.027 kg

DRUGS (3)
  1. LIPITOR [Suspect]
     Indication: BLOOD CHOLESTEROL INCREASED
     Dosage: UNK
  2. ZOLOFT [Suspect]
     Indication: STRESS
     Dosage: UNK
  3. LYRICA [Suspect]
     Indication: BACK PAIN
     Dosage: UNK
     Dates: end: 20120101

REACTIONS (5)
  - DRY EYE [None]
  - EYE DISORDER [None]
  - VISUAL ACUITY REDUCED [None]
  - EYE INFECTION [None]
  - EYE DISCHARGE [None]
